FAERS Safety Report 7346073-8 (Version None)
Quarter: 2011Q1

REPORT INFORMATION
  Report Type: 
  Country: None (occurrence: None)
  Receive Date: 20110311
  Receipt Date: 20110307
  Transmission Date: 20110831
  Serious: Yes (Other)
  Sender: FDA-Public Use
  Company Number: CA-SHIRE-SPV1-2011-00082

PATIENT
  Sex: Male
  Weight: 44.8 kg

DRUGS (4)
  1. STRATTERA [Concomitant]
     Indication: ANXIETY
  2. STRATTERA [Concomitant]
     Indication: ATTENTION DEFICIT/HYPERACTIVITY DISORDER
     Dosage: 40 MG, 1X/DAY:QD
     Route: 048
     Dates: start: 20070201
  3. VYVANSE [Suspect]
     Indication: ATTENTION DEFICIT/HYPERACTIVITY DISORDER
     Dosage: 30 MG, 1X/DAY:QD
     Route: 048
     Dates: start: 20100521, end: 20100101
  4. VYVANSE [Suspect]
     Dosage: 40 MG, 1X/DAY:QD
     Route: 048
     Dates: start: 20100101, end: 20100101

REACTIONS (4)
  - SELF-INJURIOUS IDEATION [None]
  - VERBAL ABUSE [None]
  - NEGATIVISM [None]
  - AGGRESSION [None]
